FAERS Safety Report 26032536 (Version 2)
Quarter: 2025Q4

REPORT INFORMATION
  Report Type: Spontaneous
  Country: EU (occurrence: EU)
  Receive Date: 20251112
  Receipt Date: 20251126
  Transmission Date: 20260118
  Serious: Yes (Other)
  Sender: BAXTER
  Company Number: EU-TEVA-2020-CZ-1849893

PATIENT
  Age: 61 Year
  Sex: Female

DRUGS (6)
  1. DOXORUBICIN [Suspect]
     Active Substance: DOXORUBICIN
     Indication: Intraductal proliferative breast lesion
     Dosage: UNK (4 CYCLES, NEOADJUVANT CHEMOTHERAPY)
     Route: 065
     Dates: start: 201606, end: 201608
  2. CYCLOPHOSPHAMIDE [Suspect]
     Active Substance: CYCLOPHOSPHAMIDE
     Indication: Intraductal proliferative breast lesion
     Dosage: UNK (4 CYCLES, NEOADJUVANT CHEMOTHERAPY)
     Route: 065
     Dates: start: 201606, end: 201608
  3. TRASTUZUMAB [Suspect]
     Active Substance: TRASTUZUMAB
     Indication: Intraductal proliferative breast lesion
     Dosage: UNK (SEQUENTIAL THERAPY)
     Route: 065
     Dates: start: 201608, end: 201610
  4. TRASTUZUMAB [Suspect]
     Active Substance: TRASTUZUMAB
     Indication: HER2 positive breast cancer
  5. DOCETAXEL [Suspect]
     Active Substance: DOCETAXEL
     Indication: Intraductal proliferative breast lesion
     Dosage: UNK (SEQUENTIAL THERAPY)
     Route: 065
     Dates: start: 201608, end: 201610
  6. DOCETAXEL [Suspect]
     Active Substance: DOCETAXEL
     Indication: HER2 positive breast cancer

REACTIONS (1)
  - Haematotoxicity [Unknown]
